FAERS Safety Report 14165451 (Version 5)
Quarter: 2018Q3

REPORT INFORMATION
  Report Type: Spontaneous
  Country: JP (occurrence: JP)
  Receive Date: 20171107
  Receipt Date: 20180813
  Transmission Date: 20181010
  Serious: Yes (Death, Hospitalization, Other)
  Sender: FDA-Public Use
  Company Number: JP-BRISTOL-MYERS SQUIBB COMPANY-BMS-2017-099096

PATIENT
  Age: 56 Year
  Sex: Male

DRUGS (1)
  1. OPDIVO [Suspect]
     Active Substance: NIVOLUMAB
     Indication: NON-SMALL CELL LUNG CANCER
     Dosage: 3 MG/KG, Q2WK
     Route: 041
     Dates: start: 20160712

REACTIONS (7)
  - Pneumonia bacterial [Recovered/Resolved]
  - Thrombocytopenia [Fatal]
  - Fusarium infection [Unknown]
  - Malignant neoplasm progression [Fatal]
  - Febrile neutropenia [Fatal]
  - Pancytopenia [Unknown]
  - Device related infection [Unknown]

NARRATIVE: CASE EVENT DATE: 20160901
